FAERS Safety Report 16738611 (Version 2)
Quarter: 2019Q4

REPORT INFORMATION
  Report Type: Spontaneous
  Country: DE (occurrence: DE)
  Receive Date: 20190826
  Receipt Date: 20191128
  Transmission Date: 20200122
  Serious: Yes (Other)
  Sender: FDA-Public Use
  Company Number: DE-ROCHE-2387055

PATIENT
  Age: 77 Year
  Sex: Female

DRUGS (1)
  1. HERCEPTIN [Suspect]
     Active Substance: TRASTUZUMAB
     Indication: HER-2 POSITIVE BREAST CANCER
     Dosage: 21 DROPS, CYCLE 140
     Route: 042
     Dates: start: 20110204

REACTIONS (1)
  - Acral lentiginous melanoma [Recovered/Resolved with Sequelae]

NARRATIVE: CASE EVENT DATE: 20190220
